FAERS Safety Report 24910917 (Version 1)
Quarter: 2025Q1

REPORT INFORMATION
  Report Type: Spontaneous
  Country: FR (occurrence: FR)
  Receive Date: 20250131
  Receipt Date: 20250131
  Transmission Date: 20250409
  Serious: Yes (Hospitalization)
  Sender: B BRAUN
  Company Number: FR-B.Braun Medical Inc.-2170207

PATIENT
  Age: 29 Year
  Sex: Female
  Weight: 80 kg

DRUGS (3)
  1. ACETAMINOPHEN [Suspect]
     Active Substance: ACETAMINOPHEN
     Dates: start: 20241119
  2. PROPOFOL [Suspect]
     Active Substance: PROPOFOL
  3. IOMERON [Suspect]
     Active Substance: IOMEPROL

REACTIONS (2)
  - Acute generalised exanthematous pustulosis [Recovering/Resolving]
  - Eosinophilia [Recovering/Resolving]
